FAERS Safety Report 9130214 (Version 1)
Quarter: 2013Q1

REPORT INFORMATION
  Report Type: Spontaneous
  Country: IT (occurrence: IT)
  Receive Date: 20130301
  Receipt Date: 20130301
  Transmission Date: 20140127
  Serious: Yes (Hospitalization)
  Sender: FDA-Public Use
  Company Number: IT-MYLANLABS-2013S1003801

PATIENT
  Age: 74 Year
  Sex: Female

DRUGS (2)
  1. LITHIUM [Suspect]
     Indication: BIPOLAR DISORDER
     Route: 065
  2. CARBAMAZEPINE [Concomitant]
     Indication: BIPOLAR DISORDER
     Route: 065

REACTIONS (8)
  - Electrocardiogram QT prolonged [Unknown]
  - Bradycardia [Unknown]
  - Nephrogenic diabetes insipidus [Unknown]
  - Electrocardiogram T wave inversion [Unknown]
  - Hypotension [Unknown]
  - Dysarthria [Unknown]
  - Circadian rhythm sleep disorder [Unknown]
  - Syncope [Unknown]
